FAERS Safety Report 12609991 (Version 1)
Quarter: 2016Q3

REPORT INFORMATION
  Report Type: Spontaneous
  Country: GB (occurrence: GB)
  Receive Date: 20160801
  Receipt Date: 20160801
  Transmission Date: 20161109
  Serious: Yes (Other)
  Sender: FDA-Public Use
  Company Number: GB-ACTAVIS-2016-16728

PATIENT
  Sex: Female
  Weight: 57 kg

DRUGS (1)
  1. TRAMADOL (UNKNOWN) [Suspect]
     Active Substance: TRAMADOL
     Indication: ARTHRALGIA
     Dosage: 1 DF, TOTAL
     Route: 065
     Dates: start: 2011, end: 2011

REACTIONS (4)
  - Oesophageal pain [Not Recovered/Not Resolved]
  - Pain [Not Recovered/Not Resolved]
  - Prescription drug used without a prescription [Unknown]
  - Abnormal loss of weight [Unknown]
